FAERS Safety Report 19969073 (Version 3)
Quarter: 2022Q2

REPORT INFORMATION
  Report Type: Spontaneous
  Country: PL (occurrence: PL)
  Receive Date: 20211019
  Receipt Date: 20220427
  Transmission Date: 20220721
  Serious: Yes (Disabling)
  Sender: FDA-Public Use
  Company Number: PL-ROCHE-2923187

PATIENT
  Age: 66 Year
  Sex: Male
  Weight: 93 kg

DRUGS (11)
  1. RITUXIMAB [Suspect]
     Active Substance: RITUXIMAB
     Indication: Follicular lymphoma
     Route: 042
     Dates: start: 20210730
  2. IBRUTINIB [Suspect]
     Active Substance: IBRUTINIB
     Indication: Follicular lymphoma
     Route: 048
     Dates: start: 20200730
  3. ELIQUIS [Concomitant]
     Active Substance: APIXABAN
     Dosage: FREQ:.5 D;
     Dates: start: 20210511
  4. METOPROLOL SUCCINATE [Concomitant]
     Active Substance: METOPROLOL SUCCINATE
     Indication: Hypertension
     Dates: start: 20210511
  5. DOXAR [DOXAZOSIN MESILATE] [Concomitant]
     Indication: Hypertension
     Dates: start: 20210511
  6. ALLOPURINOL [Concomitant]
     Active Substance: ALLOPURINOL
     Dates: start: 20210511
  7. TORSEMIDE [Concomitant]
     Active Substance: TORSEMIDE
     Indication: Hypertension
     Dosage: FREQ:.33 D;
     Dates: start: 20210511
  8. APO TAMIS [Concomitant]
     Indication: Benign prostatic hyperplasia
     Route: 048
     Dates: start: 20210511
  9. VITAMIN D3 [Concomitant]
     Active Substance: CHOLECALCIFEROL
     Dates: start: 20210511
  10. LERCANIDIPINE [Concomitant]
     Active Substance: LERCANIDIPINE
     Indication: Hypertension
     Dates: start: 20200511
  11. VALSARTAN [Concomitant]
     Active Substance: VALSARTAN
     Indication: Hypertension
     Dosage: FREQ:.5 D;
     Dates: start: 20210511

REACTIONS (1)
  - Septic shock [Unknown]

NARRATIVE: CASE EVENT DATE: 20210911
